FAERS Safety Report 6736989-5 (Version None)
Quarter: 2010Q2

REPORT INFORMATION
  Report Type: 
  Country: None (occurrence: None)
  Receive Date: 20100523
  Receipt Date: 20100204
  Transmission Date: 20101027
  Serious: No
  Sender: FDA-Public Use
  Company Number: US-ALLERGAN-1001410US

PATIENT
  Age: 87 Year
  Sex: Male

DRUGS (4)
  1. COMBIGAN [Suspect]
     Indication: GLAUCOMA
     Dosage: UNK
     Route: 047
  2. LUMIGAN [Concomitant]
     Dosage: UNK
  3. ATENOLOL [Concomitant]
  4. LISINOPRIL [Concomitant]

REACTIONS (4)
  - BURNING SENSATION [None]
  - ERYTHEMA [None]
  - MEMORY IMPAIRMENT [None]
  - SKIN EXFOLIATION [None]
